FAERS Safety Report 24422640 (Version 3)
Quarter: 2025Q1

REPORT INFORMATION
  Report Type: Report from Study
  Country: AU (occurrence: AU)
  Receive Date: 20241010
  Receipt Date: 20250128
  Transmission Date: 20250409
  Serious: Yes (Other)
  Sender: SAMSUNG BIOEPIS
  Company Number: AU-SAMSUNG BIOEPIS-SB-2024-24833

PATIENT
  Sex: Male

DRUGS (1)
  1. HADLIMA [Suspect]
     Active Substance: ADALIMUMAB-BWWD
     Indication: Rheumatoid arthritis
     Dates: start: 20240617

REACTIONS (7)
  - Polymyalgia rheumatica [Not Recovered/Not Resolved]
  - Rash macular [Recovered/Resolved]
  - Rash pruritic [Recovered/Resolved]
  - Headache [Recovering/Resolving]
  - Bursitis [Unknown]
  - Drug dose omission by device [Unknown]
  - Rheumatoid arthritis [Not Recovered/Not Resolved]
